FAERS Safety Report 16522200 (Version 3)
Quarter: 2019Q3

REPORT INFORMATION
  Report Type: Spontaneous
  Country: IN (occurrence: IN)
  Receive Date: 20190703
  Receipt Date: 20190808
  Transmission Date: 20191004
  Serious: Yes (Death, Life-Threatening, Hospitalization, Other)
  Sender: FDA-Public Use
  Company Number: IN-ACCORD-136819

PATIENT
  Age: 44 Month
  Sex: Male
  Weight: 11.2 kg

DRUGS (9)
  1. DEXAMETHASONE. [Concomitant]
     Active Substance: DEXAMETHASONE
     Indication: B PRECURSOR TYPE ACUTE LEUKAEMIA
     Dosage: 10 G/M2, IN TWO DIVIDED DOSES FROM THE FIRST DAY TO THE FIFTH
  2. FOLINIC ACID [Concomitant]
     Active Substance: LEUCOVORIN
     Dosage: CONTINUED EVERY 6 HOURS UNTIL THE SERUM MTX LEVEL BECAME 0.2 MICROMOL/L
  3. GLUCOSE [Concomitant]
     Active Substance: DEXTROSE
     Indication: SUPPORTIVE CARE
     Route: 042
  4. METHOTREXATE. [Suspect]
     Active Substance: METHOTREXATE
     Indication: B PRECURSOR TYPE ACUTE LEUKAEMIA
     Dosage: THE REST WAS ADMINISTERED EVENLY DURING THE SUBSEQUENT 35.5 HOURS.
     Route: 042
     Dates: start: 20180907
  5. VINCRISTINE [Concomitant]
     Active Substance: VINCRISTINE
     Indication: B PRECURSOR TYPE ACUTE LEUKAEMIA
  6. SODIUM BICARBONATE. [Concomitant]
     Active Substance: SODIUM BICARBONATE
     Indication: SUPPORTIVE CARE
     Dosage: 40 MEQ NAHCO3/LITRE WAS PROVIDED AT A RATE OF 125 ML/HR/M2
  7. POTASSIUM CHLORIDE. [Concomitant]
     Active Substance: POTASSIUM CHLORIDE
     Indication: SUPPORTIVE CARE
     Dosage: 20 MMOL KCL/LITRE
  8. SODIUM CHLORIDE. [Concomitant]
     Active Substance: SODIUM CHLORIDE
     Indication: SUPPORTIVE CARE
     Dosage: STRENGTH 0.45 %
  9. METHOTREXATE. [Suspect]
     Active Substance: METHOTREXATE
     Indication: B PRECURSOR TYPE ACUTE LEUKAEMIA
     Dosage: DOSE-1 G/M2, 10% MTX DOSE (MAXIMUM TO 0.5 G) WAS GIVEN INTRAVENOUSLY FOR THE FIRST HALF AN HOUR
     Route: 042
     Dates: start: 20180906

REACTIONS (12)
  - Pancytopenia [Not Recovered/Not Resolved]
  - Diarrhoea [Not Recovered/Not Resolved]
  - Febrile neutropenia [Not Recovered/Not Resolved]
  - Pneumonia klebsiella [Not Recovered/Not Resolved]
  - Acute hepatic failure [Not Recovered/Not Resolved]
  - Cardiac arrest [Fatal]
  - Injection site haemorrhage [Not Recovered/Not Resolved]
  - Bruxism [Not Recovered/Not Resolved]
  - Drug level increased [Not Recovered/Not Resolved]
  - Toxicity to various agents [Not Recovered/Not Resolved]
  - Vomiting [Not Recovered/Not Resolved]
  - Respiratory distress [Not Recovered/Not Resolved]

NARRATIVE: CASE EVENT DATE: 201809
